FAERS Safety Report 9891537 (Version 1)
Quarter: 2014Q1

REPORT INFORMATION
  Report Type: Spontaneous
  Country: DE (occurrence: DE)
  Receive Date: 20140212
  Receipt Date: 20140212
  Transmission Date: 20141002
  Serious: Yes (Other)
  Sender: FDA-Public Use
  Company Number: DE-UCBSA-111799

PATIENT
  Sex: Female

DRUGS (3)
  1. VIMPAT [Suspect]
     Indication: STATUS EPILEPTICUS
     Dosage: DAILY DOSE 200 MG
     Dates: start: 20140128, end: 201401
  2. VIMPAT [Suspect]
     Indication: STATUS EPILEPTICUS
     Route: 042
     Dates: start: 201401, end: 201401
  3. KEPPRA [Suspect]
     Dosage: 3000 MG
     Dates: start: 20140128

REACTIONS (2)
  - Status epilepticus [Not Recovered/Not Resolved]
  - Fatigue [Unknown]
